FAERS Safety Report 8615164-3 (Version None)
Quarter: 2012Q3

REPORT INFORMATION
  Report Type: 
  Country: None (occurrence: None)
  Receive Date: 20120823
  Receipt Date: 20120817
  Transmission Date: 20120928
  Serious: Yes (Other)
  Sender: FDA-Public Use
  Company Number: US-PFIZER INC-2012092923

PATIENT
  Age: 47 Year
  Sex: Male
  Weight: 74.83 kg

DRUGS (6)
  1. SIMVASTATIN [Concomitant]
     Indication: BLOOD CHOLESTEROL INCREASED
     Dosage: UNK
  2. MIDODRINE [Concomitant]
     Dosage: UNK
  3. CHANTIX [Suspect]
     Indication: SMOKING CESSATION THERAPY
     Dosage: 0.5 MG, 1X/DAY
     Route: 048
     Dates: start: 20120406, end: 20120401
  4. BELLADONNA [Concomitant]
     Dosage: UNK
  5. CHANTIX [Suspect]
     Indication: BLOOD PRESSURE ABNORMAL
     Dosage: 1 MG, 2X/DAY
     Route: 048
     Dates: start: 20120401, end: 20120401
  6. HYDROCODONE [Concomitant]
     Dosage: UNK

REACTIONS (12)
  - IRRITABILITY [None]
  - MENTAL DISORDER [None]
  - HYPERHIDROSIS [None]
  - OFF LABEL USE [None]
  - TOBACCO USER [None]
  - ABNORMAL BEHAVIOUR [None]
  - BLOOD PRESSURE FLUCTUATION [None]
  - SELF-INJURIOUS IDEATION [None]
  - FEELING ABNORMAL [None]
  - BLOOD TESTOSTERONE DECREASED [None]
  - MALAISE [None]
  - VOMITING [None]
